FAERS Safety Report 19033902 (Version 1)
Quarter: 2021Q1

REPORT INFORMATION
  Report Type: Spontaneous
  Country: JP (occurrence: JP)
  Receive Date: 20210319
  Receipt Date: 20210319
  Transmission Date: 20210420
  Serious: Yes (Death)
  Sender: FDA-Public Use
  Company Number: NVSC2021JP061976

PATIENT

DRUGS (4)
  1. CARFILZOMIB [Suspect]
     Active Substance: CARFILZOMIB
     Dosage: 70 MG/M2, QW (THEREAFTER: KD 20/70 MG/M2, 30 MIN IV INFUSION)
     Route: 042
  2. DEXAMETHASONE. [Suspect]
     Active Substance: DEXAMETHASONE
     Dosage: UNK (TAKEN ON DAY 22, ONLY ADMINISTERED DURING CYCLES 1 TO 9)
     Route: 048
  3. CARFILZOMIB [Suspect]
     Active Substance: CARFILZOMIB
     Indication: PLASMA CELL MYELOMA
     Dosage: 20 MG/M2 (30 MIN IV INFUSION,CYCLE1, DAY1)(ON DAYS 1, 8 AND 15 OF ALL CYCLES)
     Route: 042
  4. DEXAMETHASONE. [Suspect]
     Active Substance: DEXAMETHASONE
     Indication: PLASMA CELL MYELOMA
     Dosage: 40 MG (FOR AT LEAST 30 MIN ON DAYS 1, 8 AND 15)
     Route: 065

REACTIONS (2)
  - Product use in unapproved indication [Unknown]
  - Acute lung injury [Fatal]
